FAERS Safety Report 15448751 (Version 4)
Quarter: 2018Q4

REPORT INFORMATION
  Report Type: Spontaneous
  Country: US (occurrence: US)
  Receive Date: 20180929
  Receipt Date: 20181203
  Transmission Date: 20190204
  Serious: Yes (Life-Threatening, Other)
  Sender: FDA-Public Use
  Company Number: US-SA-2018SA269912

PATIENT
  Age: 69 Year
  Sex: Female
  Weight: 139 kg

DRUGS (1)
  1. LANTUS [Suspect]
     Active Substance: INSULIN GLARGINE
     Indication: DIABETES MELLITUS
     Dosage: 12 UNITS IN AM AND 5 UNITS IN PM
     Route: 058
     Dates: start: 20181021

REACTIONS (3)
  - Sleep disorder [Not Recovered/Not Resolved]
  - Shock hypoglycaemic [Not Recovered/Not Resolved]
  - Drug ineffective [Unknown]
